FAERS Safety Report 9748319 (Version 2)
Quarter: 2013Q4

REPORT INFORMATION
  Report Type: Report from Study
  Country: DE (occurrence: DE)
  Receive Date: 20131212
  Receipt Date: 20131212
  Transmission Date: 20140711
  Serious: No
  Sender: FDA-Public Use
  Company Number: PHHY2013DE099150

PATIENT
  Sex: Male
  Weight: 94 kg

DRUGS (17)
  1. AMN107 [Suspect]
     Indication: CHRONIC MYELOID LEUKAEMIA
     Dosage: 400 MG, PER DAY
     Route: 048
     Dates: start: 20130529
  2. AMN107 [Suspect]
     Dosage: 400 MG, PER DAY
     Route: 048
     Dates: start: 20131114, end: 20131202
  3. ASS [Concomitant]
  4. ALLOPURINOL [Concomitant]
     Dates: start: 20120110
  5. AMLODIPIN//AMLODIPINE [Concomitant]
     Dosage: 5 MG
  6. FUROSEMID ^DAK^ [Concomitant]
     Dosage: 40 MG
     Dates: start: 20130529
  7. ERYTHROCYTES [Concomitant]
     Dates: start: 20130717, end: 20130717
  8. ERYTHROCYTES [Concomitant]
     Dates: start: 20130820, end: 20130820
  9. CISPLATIN [Concomitant]
     Dates: start: 20130403
  10. VINORELBIN [Concomitant]
     Dates: start: 20130403
  11. NACL [Concomitant]
     Indication: BLOOD CREATININE INCREASED
     Dosage: 1000 ML
     Dates: start: 20130717, end: 20130717
  12. NACL [Concomitant]
     Dosage: 1000 ML
     Dates: start: 20130801, end: 20130801
  13. NACL [Concomitant]
     Dosage: 1000 ML
     Dates: start: 20130802, end: 20130802
  14. PREDNISOLON [Concomitant]
     Dates: start: 20130916
  15. LANTUS [Concomitant]
  16. ACC [Concomitant]
     Dosage: 600 MG
     Dates: start: 20131117
  17. PANTOZOL [Concomitant]
     Dosage: 40 MG
     Dates: start: 20131117, end: 20131202

REACTIONS (6)
  - Leukopenia [Recovered/Resolved]
  - Anaemia [Recovered/Resolved]
  - Blood creatinine increased [Not Recovered/Not Resolved]
  - Thrombocytopenia [Not Recovered/Not Resolved]
  - Neutropenia [Recovered/Resolved]
  - Malaise [Recovered/Resolved]
